FAERS Safety Report 16222334 (Version 2)
Quarter: 2019Q2

REPORT INFORMATION
  Report Type: Report from Study
  Country: DE (occurrence: DE)
  Receive Date: 20190422
  Receipt Date: 20190503
  Transmission Date: 20190711
  Serious: Yes (Hospitalization)
  Sender: FDA-Public Use
  Company Number: DE-TEVA-2019-DE-1033810

PATIENT
  Age: 5 Year
  Sex: Male
  Weight: 17.1 kg

DRUGS (3)
  1. FLUDARABINE [Suspect]
     Active Substance: FLUDARABINE PHOSPHATE
     Dosage: 21 MILLIGRAM DAILY;
     Route: 042
     Dates: start: 20190118, end: 20190122
  2. THIOTEPA. [Suspect]
     Active Substance: THIOTEPA
     Dosage: 174 MILLIGRAM DAILY;
     Route: 042
     Dates: start: 20190123, end: 20190123
  3. TREOSULFAN [Suspect]
     Active Substance: TREOSULFAN
     Dosage: 8.4 GRAM DAILY;
     Route: 065
     Dates: start: 20190119, end: 20190121

REACTIONS (4)
  - Pyrexia [Recovered/Resolved]
  - Cough [Recovered/Resolved]
  - Bronchitis [Recovered/Resolved]
  - Lung infiltration [Recovered/Resolved]

NARRATIVE: CASE EVENT DATE: 20190307
